FAERS Safety Report 5060883-1 (Version None)
Quarter: 2006Q3

REPORT INFORMATION
  Report Type: 
  Country: None (occurrence: None)
  Receive Date: 20060725
  Receipt Date: 20060210
  Transmission Date: 20061208
  Serious: Yes (Life-Threatening, Hospitalization)
  Sender: FDA-Public Use
  Company Number: JP-MERCK-0602USA04315

PATIENT
  Age: 51 Year
  Sex: Female
  Weight: 52 kg

DRUGS (3)
  1. TIMOPTIC [Suspect]
     Indication: GLAUCOMA
     Route: 047
     Dates: start: 20021224, end: 20060208
  2. XALATAN [Concomitant]
     Indication: GLAUCOMA
     Route: 047
     Dates: start: 20050324, end: 20060208
  3. VITAMINS (UNSPECIFIED) [Concomitant]
     Route: 048

REACTIONS (3)
  - BLOOD POTASSIUM INCREASED [None]
  - KIDNEY FIBROSIS [None]
  - RENAL TUBULAR ACIDOSIS [None]
